FAERS Safety Report 16270158 (Version 1)
Quarter: 2019Q2

REPORT INFORMATION
  Report Type: Spontaneous
  Country: US (occurrence: US)
  Receive Date: 20190329
  Receipt Date: 20190329
  Transmission Date: 20190711
  Serious: No
  Sender: FDA-Public Use
  Company Number: None

PATIENT
  Age: 33 Year
  Sex: Female
  Weight: 70.31 kg

DRUGS (2)
  1. TRINTELLIX [Suspect]
     Active Substance: VORTIOXETINE HYDROBROMIDE
     Indication: MAJOR DEPRESSION
     Dosage: ?          QUANTITY:20 MG MILLIGRAM(S);?
     Route: 048
     Dates: start: 20180924
  2. WELLBUTRIN XL [Concomitant]
     Active Substance: BUPROPION HYDROCHLORIDE

REACTIONS (4)
  - Increased appetite [None]
  - Lack of satiety [None]
  - Abdominal distension [None]
  - Weight increased [None]

NARRATIVE: CASE EVENT DATE: 20181001
